FAERS Safety Report 4437011-6 (Version None)
Quarter: 2004Q3

REPORT INFORMATION
  Report Type: 
  Country: None (occurrence: None)
  Receive Date: 20040827
  Receipt Date: 20040824
  Transmission Date: 20050211
  Serious: Yes (Hospitalization)
  Sender: FDA-Public Use
  Company Number: 233171K04USA

PATIENT
  Age: 48 Year
  Sex: Female

DRUGS (1)
  1. REBIF [Suspect]
     Indication: MULTIPLE SCLEROSIS
     Dosage: 44 MCG,
     Dates: start: 20040527, end: 20040630

REACTIONS (3)
  - DRUG HYPERSENSITIVITY [None]
  - SMALL INTESTINAL OBSTRUCTION [None]
  - URINARY RETENTION [None]
